FAERS Safety Report 6111188-9 (Version None)
Quarter: 2009Q1

REPORT INFORMATION
  Report Type: 
  Country: None (occurrence: None)
  Receive Date: 20090309
  Receipt Date: 20090309
  Transmission Date: 20090719
  Serious: Yes (Life-Threatening)
  Sender: FDA-Public Use
  Company Number: None

PATIENT
  Sex: Female
  Weight: 81.3 kg

DRUGS (13)
  1. SIROLIMUS [Suspect]
     Indication: IMMUNOSUPPRESSION
     Dosage: 5MG QD PO
     Route: 048
     Dates: start: 20051213, end: 20080924
  2. SIROLIMUS [Suspect]
     Indication: LUNG TRANSPLANT
     Dosage: 5MG QD PO
     Route: 048
     Dates: start: 20051213, end: 20080924
  3. PROGRAF [Concomitant]
  4. PREDNISONE [Concomitant]
  5. ESOMEPRAZOLE [Concomitant]
  6. CALCIUM W/ VIT D [Concomitant]
  7. ALENDRONATE SODIUM [Concomitant]
  8. MG OXIDE [Concomitant]
  9. SULFAMETHOXAZOLE + TRIMETHOPRIM [Concomitant]
  10. M.V.I. [Concomitant]
  11. ATENOLOL [Concomitant]
  12. PROBASTATIN [Concomitant]
  13. FLUTICASONE PROPIONATE [Concomitant]

REACTIONS (1)
  - DEEP VEIN THROMBOSIS [None]
